FAERS Safety Report 8071441-9 (Version None)
Quarter: 2012Q1

REPORT INFORMATION
  Report Type: 
  Country: None (occurrence: None)
  Receive Date: 20120125
  Receipt Date: 20120118
  Transmission Date: 20120608
  Serious: Yes (Other)
  Sender: FDA-Public Use
  Company Number: GB-ABBOTT-11P-167-0882473-00

PATIENT
  Age: 37 Year
  Sex: Female

DRUGS (2)
  1. VALPROIC ACID [Suspect]
     Indication: EPILEPSY
     Route: 048
     Dates: start: 20010127
  2. VALPROIC ACID [Suspect]
     Route: 048
     Dates: start: 20010427

REACTIONS (3)
  - FALL [None]
  - CONVULSION [None]
  - INCORRECT STORAGE OF DRUG [None]
